FAERS Safety Report 14337728 (Version 1)
Quarter: 2017Q4

REPORT INFORMATION
  Report Type: Spontaneous
  Country: FR (occurrence: FR)
  Receive Date: 20171229
  Receipt Date: 20171229
  Transmission Date: 20180321
  Serious: Yes (Other)
  Sender: FDA-Public Use
  Company Number: FR-BAYER-2017-248856

PATIENT
  Age: 25 Year
  Sex: Female

DRUGS (8)
  1. INTERFERON ALFA NOS [Concomitant]
     Active Substance: INTERFERON ALFA-2A OR INTERFERON ALFA-2B
     Dosage: 30 MG/WEEK
  2. HYDROXYUREA. [Concomitant]
     Active Substance: HYDROXYUREA
  3. ANAGRELIDE. [Concomitant]
     Active Substance: ANAGRELIDE HYDROCHLORIDE
     Indication: ESSENTIAL THROMBOCYTHAEMIA
     Dosage: 0.5 MG, QID
  4. ACETYLSALICYLIC ACID({=100 MG) [Suspect]
     Active Substance: ASPIRIN
     Indication: ESSENTIAL THROMBOCYTHAEMIA
     Dosage: 100 MG/D, UNK
  5. FLUINDIONE [Concomitant]
     Active Substance: FLUINDIONE
     Dosage: 20 MG HALF TO THREE-QUARTER PILL/DAY
  6. HEPARIN [Concomitant]
     Active Substance: HEPARIN SODIUM
     Indication: BUDD-CHIARI SYNDROME
  7. TINZAPARINE [Concomitant]
     Active Substance: TINZAPARIN
     Dosage: 15,000 UI/DAY
  8. ENOXAPARIN [Concomitant]
     Active Substance: ENOXAPARIN
     Dosage: 0.4 ML/D, UNK

REACTIONS (5)
  - Abortion spontaneous [None]
  - Maternal exposure during pregnancy [None]
  - Off label use [None]
  - Anembryonic gestation [None]
  - Product use in unapproved indication [None]
